FAERS Safety Report 26127923 (Version 2)
Quarter: 2025Q4

REPORT INFORMATION
  Report Type: Report from Study
  Country: JP (occurrence: JP)
  Receive Date: 20251206
  Receipt Date: 20251209
  Transmission Date: 20260119
  Serious: Yes (Death, Other)
  Sender: TAKEDA
  Company Number: JP-JNJFOC-20251203322

PATIENT

DRUGS (3)
  1. BORTEZOMIB [Suspect]
     Active Substance: BORTEZOMIB
     Indication: Plasma cell myeloma
     Dosage: UNK
  2. DEXAMETHASONE [Suspect]
     Active Substance: DEXAMETHASONE
     Indication: Plasma cell myeloma
     Dosage: UNK
  3. CYCLOPHOSPHAMIDE [Suspect]
     Active Substance: CYCLOPHOSPHAMIDE
     Indication: Plasma cell myeloma
     Dosage: UNK

REACTIONS (6)
  - Plasma cell myeloma [Fatal]
  - Haemorrhage intracranial [Fatal]
  - Neuropathy peripheral [Unknown]
  - Nausea [Unknown]
  - Drug intolerance [Unknown]
  - Monoclonal immunoglobulin increased [Unknown]
